FAERS Safety Report 12622605 (Version 3)
Quarter: 2016Q4

REPORT INFORMATION
  Report Type: Spontaneous
  Country: JP (occurrence: JP)
  Receive Date: 20160804
  Receipt Date: 20161003
  Transmission Date: 20170207
  Serious: Yes (Hospitalization, Other)
  Sender: FDA-Public Use
  Company Number: JP-009507513-1607JPN012865

PATIENT
  Age: 53 Year
  Sex: Female
  Weight: 59 kg

DRUGS (10)
  1. ATP [Concomitant]
     Active Substance: ADENOSINE TRIPHOSPHATE DISODIUM
     Dosage: FORMULATION: POR, 2 DF, TID
     Route: 048
  2. LANSOPRAZOLE. [Suspect]
     Active Substance: LANSOPRAZOLE
     Dosage: 1 DF, QD
     Route: 048
     Dates: start: 20160608, end: 20160626
  3. BETAHISTINE MESYLATE [Suspect]
     Active Substance: BETAHISTINE MESILATE
     Dosage: 2 DF, TID
     Route: 048
     Dates: start: 20160608, end: 20160628
  4. ISOSORBIDE MONONITRATE. [Suspect]
     Active Substance: ISOSORBIDE MONONITRATE
     Dosage: FORMULATION: POR, 30 ML, TID
     Route: 048
  5. CELECOX [Concomitant]
     Active Substance: CELECOXIB
     Dosage: FORMULATION: POR, 1 DF, BID
     Route: 048
  6. BELSOMRA [Suspect]
     Active Substance: SUVOREXANT
     Indication: INSOMNIA
     Dosage: 15 MG, QD
     Route: 048
     Dates: start: 20160624, end: 20160625
  7. ETIZOLAM [Concomitant]
     Active Substance: ETIZOLAM
     Dosage: FORMULATION: POR, 1 DF, QD
     Route: 048
  8. METHYCOBAL [Concomitant]
     Active Substance: METHYLCOBALAMIN
     Dosage: FORMULATION: POR, 1 DF, TID
     Route: 048
  9. MERCAZOLE [Concomitant]
     Active Substance: CARBIMAZOLE
     Dosage: FORMULATION: POR, 1 DF, QD
     Route: 048
  10. MUCOSTA [Concomitant]
     Active Substance: REBAMIPIDE
     Dosage: FORMULATION: POR, 1 DF, BID
     Route: 048

REACTIONS (2)
  - Erythema multiforme [Recovered/Resolved]
  - Underdose [Unknown]

NARRATIVE: CASE EVENT DATE: 20160624
